FAERS Safety Report 4445270-9 (Version None)
Quarter: 2004Q3

REPORT INFORMATION
  Report Type: 
  Country: None (occurrence: None)
  Receive Date: 20040907
  Receipt Date: 20040831
  Transmission Date: 20050211
  Serious: No
  Sender: FDA-Public Use
  Company Number: 04P-167-0271191-00

PATIENT
  Age: 60 Year
  Sex: Female

DRUGS (3)
  1. BIAXIN [Suspect]
     Indication: HELICOBACTER INFECTION
     Dosage: 2 IN 1 D
     Dates: start: 20040809, end: 20040809
  2. LANSOPRAZOLE [Suspect]
     Indication: HELICOBACTER INFECTION
     Dosage: 2 IN 1 D
     Dates: start: 20040809, end: 20040809
  3. AMOXICILLIN [Suspect]
     Indication: HELICOBACTER INFECTION
     Dosage: 2 IN 1 D
     Dates: start: 20040809, end: 20040809

REACTIONS (10)
  - ABDOMINAL DISTENSION [None]
  - BURNING SENSATION [None]
  - DYSGEUSIA [None]
  - FEELING HOT [None]
  - HYPERSENSITIVITY [None]
  - LOOSE STOOLS [None]
  - NAUSEA [None]
  - NEUROPATHY PERIPHERAL [None]
  - PARAESTHESIA [None]
  - STOMACH DISCOMFORT [None]
